FAERS Safety Report 16608755 (Version 1)
Quarter: 2019Q3

REPORT INFORMATION
  Report Type: Spontaneous
  Country: FR (occurrence: FR)
  Receive Date: 20190722
  Receipt Date: 20190722
  Transmission Date: 20191004
  Serious: Yes (Hospitalization, Other)
  Sender: FDA-Public Use
  Company Number: FR-PFIZER INC-2019304396

PATIENT
  Sex: Male
  Weight: 2.98 kg

DRUGS (2)
  1. EFFEXOR LP [Suspect]
     Active Substance: VENLAFAXINE HYDROCHLORIDE
     Indication: DEPRESSION
     Dosage: 225 MG, 1X/DAY
     Route: 064
  2. LYSANXIA [Suspect]
     Active Substance: PRAZEPAM
     Indication: DEPRESSION
     Dosage: 30 MG, 1X/DAY
     Route: 064

REACTIONS (3)
  - Maternal exposure during pregnancy [Unknown]
  - Hypotonia neonatal [Recovering/Resolving]
  - Neonatal respiratory distress [Recovering/Resolving]

NARRATIVE: CASE EVENT DATE: 20190529
